FAERS Safety Report 9961362 (Version 3)
Quarter: 2014Q2

REPORT INFORMATION
  Report Type: Spontaneous
  Country: US (occurrence: US)
  Receive Date: 20140305
  Receipt Date: 20140422
  Transmission Date: 20141212
  Serious: Yes (Other)
  Sender: FDA-Public Use
  Company Number: US-JNJFOC-20140216751

PATIENT
  Age: 82 Year
  Sex: Male
  Weight: 113.4 kg

DRUGS (7)
  1. XARELTO [Suspect]
     Indication: CEREBROVASCULAR ACCIDENT PROPHYLAXIS
     Route: 048
     Dates: start: 201307
  2. XARELTO [Suspect]
     Indication: ATRIAL FIBRILLATION
     Route: 048
     Dates: start: 201307
  3. OMEPRAZOLE [Concomitant]
     Indication: GASTROOESOPHAGEAL REFLUX DISEASE
     Route: 065
  4. VERAPAMIL [Concomitant]
     Indication: HYPERTENSION
     Route: 065
     Dates: start: 201307
  5. LOSARTAN [Concomitant]
     Indication: HYPERTENSION
     Route: 065
     Dates: start: 2013
  6. HYDROCODONE [Concomitant]
     Indication: PAIN
     Route: 065
     Dates: start: 2013
  7. TERAZOSIN [Concomitant]
     Indication: PROSTATIC DISORDER
     Route: 065

REACTIONS (5)
  - Nerve compression [Not Recovered/Not Resolved]
  - Muscular weakness [Recovered/Resolved]
  - Asthenia [Not Recovered/Not Resolved]
  - Restlessness [Not Recovered/Not Resolved]
  - Pain [Unknown]
